FAERS Safety Report 7093909-4 (Version None)
Quarter: 2010Q4

REPORT INFORMATION
  Report Type: 
  Country: None (occurrence: None)
  Receive Date: 20101102
  Receipt Date: 20101022
  Transmission Date: 20110411
  Serious: Yes (Hospitalization)
  Sender: FDA-Public Use
  Company Number: 2010US004385

PATIENT
  Age: 50 Year
  Sex: Male

DRUGS (4)
  1. PROGRAF [Suspect]
     Indication: RENAL TRANSPLANT
     Dosage: 1 MG, 5 PER DAY, ORAL
     Route: 048
  2. VERAPAMIL [Concomitant]
  3. CALCITROL (CALCIUM CARBONATE, ERGOCALCIFEROL RETINOL) [Concomitant]
  4. PREDNISONE [Concomitant]

REACTIONS (4)
  - ABDOMINAL PAIN [None]
  - DIARRHOEA [None]
  - DISCOMFORT [None]
  - INTESTINAL FUNCTIONAL DISORDER [None]
